FAERS Safety Report 9038453 (Version 4)
Quarter: 2013Q1

REPORT INFORMATION
  Report Type: Spontaneous
  Country: JP (occurrence: JP)
  Receive Date: 20130129
  Receipt Date: 20130306
  Transmission Date: 20140127
  Serious: Yes (Death, Life-Threatening)
  Sender: FDA-Public Use
  Company Number: JP-ROCHE-1184333

PATIENT
  Age: 80 Year
  Sex: Male
  Weight: 57 kg

DRUGS (9)
  1. MIRCERA [Suspect]
     Indication: NEPHROGENIC ANAEMIA
     Route: 042
     Dates: start: 20110820, end: 20120321
  2. MIRCERA [Suspect]
     Indication: NEPHROGENIC ANAEMIA
     Route: 042
     Dates: start: 20120322
  3. PURSENNID [Concomitant]
     Route: 048
  4. LASIX [Concomitant]
     Route: 048
  5. UNICON [Concomitant]
     Route: 048
  6. BAYASPIRIN [Concomitant]
     Route: 048
  7. ARTIST [Concomitant]
     Route: 048
  8. SIGMART [Concomitant]
     Route: 048
  9. CONIEL [Concomitant]
     Route: 048
     Dates: start: 20100713

REACTIONS (4)
  - Infection [Fatal]
  - Aplasia pure red cell [Not Recovered/Not Resolved]
  - Disseminated intravascular coagulation [Not Recovered/Not Resolved]
  - Bone marrow failure [Not Recovered/Not Resolved]
